FAERS Safety Report 6163291-5 (Version None)
Quarter: 2009Q2

REPORT INFORMATION
  Report Type: 
  Country: None (occurrence: None)
  Receive Date: 20090422
  Receipt Date: 20090414
  Transmission Date: 20091009
  Serious: Yes (Death, Other)
  Sender: FDA-Public Use
  Company Number: BR-BRISTOL-MYERS SQUIBB COMPANY-14566657

PATIENT
  Age: 17 Year
  Sex: Male

DRUGS (2)
  1. AMPHOTERICIN B [Suspect]
     Indication: SYSTEMIC CANDIDA
  2. ITRACONAZOLE [Suspect]
     Indication: SINUSITIS ASPERGILLUS

REACTIONS (2)
  - DRUG INEFFECTIVE [None]
  - SINUSITIS ASPERGILLUS [None]
